FAERS Safety Report 10854112 (Version 1)
Quarter: 2015Q1

REPORT INFORMATION
  Report Type: Spontaneous
  Country: JP (occurrence: None)
  Receive Date: 20150218
  Receipt Date: 20150218
  Transmission Date: 20150721
  Serious: Yes (Other)
  Sender: FDA-Public Use
  Company Number: COR_00249_2015

PATIENT
  Age: 34 Year
  Sex: Male

DRUGS (4)
  1. ETOPOSIDE. [Suspect]
     Active Substance: ETOPOSIDE
     Indication: TESTICULAR EMBRYONAL CARCINOMA STAGE II
  2. BLEOMYCIN [Suspect]
     Active Substance: BLEOMYCIN SULFATE
     Indication: TESTICULAR EMBRYONAL CARCINOMA STAGE II
  3. CISPLATIN (CISPLATIN) [Suspect]
     Active Substance: CISPLATIN
     Indication: TESTICULAR EMBRYONAL CARCINOMA STAGE II
  4. METHYLPREDNISOLONE (METHYLPREDNISOLONE) [Suspect]
     Active Substance: METHYLPREDNISOLONE
     Indication: PRODUCT USED FOR UNKNOWN INDICATION

REACTIONS (4)
  - Coronary artery stenosis [None]
  - Myocardial ischaemia [None]
  - Electrocardiogram ST segment elevation [None]
  - Acute myocardial infarction [None]
